FAERS Safety Report 5000614-4 (Version None)
Quarter: 2006Q2

REPORT INFORMATION
  Report Type: 
  Country: None (occurrence: None)
  Receive Date: 20060512
  Receipt Date: 20050727
  Transmission Date: 20061013
  Serious: No
  Sender: FDA-Public Use
  Company Number: DEWYE861627JUL05

PATIENT
  Sex: Female

DRUGS (1)
  1. ENBREL [Suspect]
     Indication: ANKYLOSING SPONDYLITIS
     Dosage: UNKNOWN
     Route: 058
     Dates: start: 20040901

REACTIONS (1)
  - HYPOAESTHESIA [None]
